FAERS Safety Report 16145357 (Version 1)
Quarter: 2019Q2

REPORT INFORMATION
  Report Type: Spontaneous
  Country: FR (occurrence: FR)
  Receive Date: 20190402
  Receipt Date: 20190402
  Transmission Date: 20190711
  Serious: Yes (Death)
  Sender: FDA-Public Use
  Company Number: FR-TEVA-2019-FR-1031955

PATIENT
  Age: 55 Year
  Sex: Male

DRUGS (3)
  1. MIRTAZAPINE. [Suspect]
     Active Substance: MIRTAZAPINE
     Indication: POISONING DELIBERATE
     Route: 048
     Dates: start: 20180525
  2. TERCIAN [Suspect]
     Active Substance: CYAMEMAZINE
     Indication: POISONING DELIBERATE
     Route: 048
     Dates: start: 20180525
  3. LORAZEPAM. [Suspect]
     Active Substance: LORAZEPAM
     Indication: POISONING DELIBERATE
     Route: 048
     Dates: start: 20180525

REACTIONS (4)
  - Tachycardia [Fatal]
  - Poisoning deliberate [Fatal]
  - Cardiac arrest [Fatal]
  - Somnolence [Fatal]

NARRATIVE: CASE EVENT DATE: 20180525
